FAERS Safety Report 11856398 (Version 3)
Quarter: 2015Q4

REPORT INFORMATION
  Report Type: Report from Study
  Country: PT (occurrence: PT)
  Receive Date: 20151221
  Receipt Date: 20151230
  Transmission Date: 20160305
  Serious: No
  Sender: FDA-Public Use
  Company Number: PHHY2015PT163116

PATIENT
  Age: 63 Year
  Sex: Female

DRUGS (7)
  1. SINVASTATINA [Concomitant]
     Active Substance: SIMVASTATIN
     Indication: MALIGNANT HYPERTENSION
     Dosage: 20 MG, QD
     Route: 065
  2. TASIGNA [Suspect]
     Active Substance: NILOTINIB
     Indication: CHRONIC MYELOID LEUKAEMIA
     Dosage: 600 UNK, UNK
     Route: 065
     Dates: start: 20150220
  3. HYDROCHLOROTHIAZIDE. [Concomitant]
     Active Substance: HYDROCHLOROTHIAZIDE
     Indication: MALIGNANT HYPERTENSION
     Dosage: 12.5 MG, QD
     Route: 065
  4. LOZARTEN [Concomitant]
     Indication: MALIGNANT HYPERTENSION
     Dosage: 50 MG, QD
     Route: 065
  5. ALLOPURINOL. [Concomitant]
     Active Substance: ALLOPURINOL
     Indication: TUMOUR LYSIS SYNDROME
     Dosage: 300 MG, QD
     Route: 065
     Dates: start: 20150121
  6. CITALOPRAM [Concomitant]
     Active Substance: CITALOPRAM HYDROBROMIDE
     Indication: MALIGNANT HYPERTENSION
     Dosage: 10 MG, QD
     Route: 065
  7. HYDROXYUREA. [Concomitant]
     Active Substance: HYDROXYUREA
     Indication: TUMOUR LYSIS SYNDROME
     Dosage: 2 G, QD
     Route: 065
     Dates: start: 20150121, end: 20150220

REACTIONS (6)
  - Muscle spasms [Recovered/Resolved]
  - Monocyte count increased [Recovered/Resolved]
  - Red blood cell count decreased [Recovered/Resolved]
  - Haemoglobin decreased [Unknown]
  - White blood cell count increased [Recovered/Resolved]
  - Haematocrit decreased [Unknown]

NARRATIVE: CASE EVENT DATE: 20150217
